FAERS Safety Report 15097710 (Version 1)
Quarter: 2018Q3

REPORT INFORMATION
  Report Type: Spontaneous
  Country: US (occurrence: US)
  Receive Date: 20180702
  Receipt Date: 20180702
  Transmission Date: 20181010
  Serious: No
  Sender: FDA-Public Use
  Company Number: US-AVEDRO-AVE-2018-0097-AE

PATIENT

DRUGS (1)
  1. AVEDRO CROSS?LINKING PRODUCT(S), UNSPECIFIED (RIBOFLAVIN 5^?PHOSPHATE SODIUM) [Suspect]
     Active Substance: RIBOFLAVIN 5^-PHOSPHATE SODIUM
     Indication: PRODUCT USED FOR UNKNOWN INDICATION
     Route: 047
     Dates: start: 201712, end: 201712

REACTIONS (2)
  - Disease progression [Unknown]
  - Keratoconus [None]

NARRATIVE: CASE EVENT DATE: 201712
